FAERS Safety Report 15043597 (Version 1)
Quarter: 2018Q2

REPORT INFORMATION
  Report Type: Spontaneous
  Country: KW (occurrence: KW)
  Receive Date: 20180621
  Receipt Date: 20180621
  Transmission Date: 20180711
  Serious: Yes (Other)
  Sender: FDA-Public Use
  Company Number: PHHY2018KW023611

PATIENT
  Age: 14 Year
  Sex: Female
  Weight: 33 kg

DRUGS (5)
  1. METHYLPHENIDATE HYDROCHLORIDE. [Suspect]
     Active Substance: METHYLPHENIDATE HYDROCHLORIDE
     Indication: OPPOSITIONAL DEFIANT DISORDER
     Dosage: 15 MG, QD
     Route: 065
  2. FLUVOXAMINE [Concomitant]
     Active Substance: FLUVOXAMINE
     Indication: ATTENTION DEFICIT/HYPERACTIVITY DISORDER
     Dosage: 200 MG, QD
     Route: 065
  3. FLUVOXAMINE [Concomitant]
     Active Substance: FLUVOXAMINE
     Indication: OPPOSITIONAL DEFIANT DISORDER
  4. METHYLPHENIDATE HYDROCHLORIDE. [Suspect]
     Active Substance: METHYLPHENIDATE HYDROCHLORIDE
     Dosage: 30 MG, QD
     Route: 065
  5. METHYLPHENIDATE HYDROCHLORIDE. [Suspect]
     Active Substance: METHYLPHENIDATE HYDROCHLORIDE
     Indication: ATTENTION DEFICIT/HYPERACTIVITY DISORDER
     Dosage: 30 MG, QD
     Route: 065

REACTIONS (1)
  - Compulsive shopping [Recovered/Resolved]
